FAERS Safety Report 15037874 (Version 2)
Quarter: 2018Q3

REPORT INFORMATION
  Report Type: Spontaneous
  Country: US (occurrence: US)
  Receive Date: 20180620
  Receipt Date: 20180702
  Transmission Date: 20181010
  Serious: Yes (Life-Threatening, Hospitalization)
  Sender: FDA-Public Use
  Company Number: US-BIOGEN-2018BI00596499

PATIENT
  Age: 58 Year
  Sex: Male

DRUGS (2)
  1. AVONEX [Suspect]
     Active Substance: INTERFERON BETA-1A
     Route: 030
     Dates: start: 20160620
  2. AVONEX [Suspect]
     Active Substance: INTERFERON BETA-1A
     Indication: MULTIPLE SCLEROSIS
     Route: 065
     Dates: start: 20141002

REACTIONS (5)
  - Restless legs syndrome [Not Recovered/Not Resolved]
  - Pneumonia [Recovered/Resolved]
  - Laryngeal cancer [Recovered/Resolved]
  - Influenza [Recovered/Resolved]
  - Lymphoma [Recovered/Resolved]

NARRATIVE: CASE EVENT DATE: 201712
